FAERS Safety Report 8965514 (Version 2)
Quarter: 2012Q4

REPORT INFORMATION
  Report Type: Spontaneous
  Country: US (occurrence: None)
  Receive Date: 20121205
  Receipt Date: 20121219
  Transmission Date: 20130627
  Serious: Yes (Death)
  Sender: FDA-Public Use
  Company Number: 2012110119

PATIENT
  Age: 56 Year
  Sex: Female
  Weight: 60.78 kg

DRUGS (8)
  1. CARISOPRODOL [Suspect]
     Indication: SUICIDE
  2. ZOLPIDEM [Suspect]
     Indication: SUICIDE
  3. TRAMADOL [Suspect]
     Indication: SUICIDE
  4. BUTALBITAL [Suspect]
     Indication: SUICIDE
  5. TEMAZEPAM [Suspect]
     Indication: SUICIDE
  6. HYDROCODONE [Suspect]
     Indication: SUICIDE
  7. DIPHENHYDRAMINE [Suspect]
     Indication: SUICIDE
  8. CITALOPRAM (CITALOPRAM) [Suspect]
     Indication: SUICIDE

REACTIONS (2)
  - Toxicity to various agents [None]
  - Completed suicide [None]
